FAERS Safety Report 7578206-2 (Version None)
Quarter: 2011Q2

REPORT INFORMATION
  Report Type: 
  Country: None (occurrence: None)
  Receive Date: 20110628
  Receipt Date: 20110617
  Transmission Date: 20111010
  Serious: Yes (Hospitalization)
  Sender: FDA-Public Use
  Company Number: B0547524A

PATIENT
  Age: 44 Year
  Sex: Female

DRUGS (13)
  1. VALTREX [Concomitant]
     Indication: HERPES VIRUS INFECTION
     Dosage: 1G PER DAY
     Route: 048
  2. BENADRYL [Concomitant]
     Indication: INSOMNIA
     Dosage: 50MG PER DAY
     Route: 048
     Dates: start: 20081017
  3. FLAGYL [Concomitant]
     Indication: VAGINAL INFECTION
     Dosage: 500MG TWICE PER DAY
     Route: 048
     Dates: start: 20081031
  4. ALBUTEROL SULFATE AUTOHALER [Concomitant]
     Indication: ASTHMA
     Dosage: 90UG AS REQUIRED
     Route: 055
  5. CLOTRIMAZOLE [Concomitant]
     Route: 061
     Dates: start: 20081031
  6. NORVASC [Concomitant]
     Indication: HYPERTENSION
     Dosage: 10MG PER DAY
     Route: 048
  7. FERROUS SULFATE TAB [Concomitant]
     Dosage: 325MG TWICE PER DAY
     Route: 048
     Dates: start: 20081031
  8. BLINDED TRIAL MEDICATION [Suspect]
     Indication: HIV INFECTION
     Dosage: 25MG PER DAY
     Route: 048
     Dates: start: 20081028
  9. ABACAVIR SULFATE AND LAMIVUDINE [Suspect]
     Indication: HIV INFECTION
     Dosage: 1TAB PER DAY
     Route: 048
     Dates: start: 20081028
  10. ADVAIR DISKUS 100/50 [Concomitant]
     Indication: ASTHMA
     Route: 055
  11. DICLOFENAC SODIUM [Concomitant]
     Indication: ARTHRITIS
     Dosage: 50MG THREE TIMES PER DAY
     Route: 048
  12. COLACE [Concomitant]
     Dosage: 100MG TWICE PER DAY
     Route: 048
     Dates: start: 20081031
  13. SEROQUEL [Concomitant]
     Indication: INSOMNIA
     Dosage: 25MG PER DAY
     Route: 048

REACTIONS (15)
  - DRUG HYPERSENSITIVITY [None]
  - ASTHENIA [None]
  - BACK PAIN [None]
  - CANDIDIASIS [None]
  - DELIRIUM [None]
  - PYREXIA [None]
  - SOMNOLENCE [None]
  - OROPHARYNGEAL PAIN [None]
  - C-REACTIVE PROTEIN INCREASED [None]
  - PAIN [None]
  - MYALGIA [None]
  - CHILLS [None]
  - HYPERHIDROSIS [None]
  - ARTHRALGIA [None]
  - VIRAL INFECTION [None]
